FAERS Safety Report 4345417-9 (Version None)
Quarter: 2004Q2

REPORT INFORMATION
  Report Type: 
  Country: None (occurrence: None)
  Receive Date: 20040421
  Receipt Date: 20040408
  Transmission Date: 20050107
  Serious: Yes (Hospitalization)
  Sender: FDA-Public Use
  Company Number: 2004208658FR

PATIENT
  Age: 75 Year
  Sex: Male

DRUGS (2)
  1. CELEBREX [Suspect]
     Indication: BACK PAIN
     Dosage: 1 DF, BID, ORAL
     Route: 048
     Dates: start: 20030114, end: 20040120
  2. ICAZ-SLOW RELEASE (ISRADIPINE) [Concomitant]

REACTIONS (2)
  - COLITIS ISCHAEMIC [None]
  - LARGE INTESTINAL ULCER [None]
